FAERS Safety Report 7367657-7 (Version None)
Quarter: 2011Q1

REPORT INFORMATION
  Report Type: 
  Country: None (occurrence: None)
  Receive Date: 20110322
  Receipt Date: 20110316
  Transmission Date: 20110831
  Serious: Yes (Other)
  Sender: FDA-Public Use
  Company Number: BR-PFIZER INC-2011011004

PATIENT
  Age: 68 Year
  Sex: Male
  Weight: 79 kg

DRUGS (10)
  1. VIAGRA [Suspect]
     Indication: ERECTILE DYSFUNCTION
     Dosage: 50 MG, 2 TABLETS BEFORE SEXUAL INTERCOURSE
     Route: 048
  2. VIAGRA [Suspect]
     Dosage: 50 MG, UNK
     Route: 048
     Dates: start: 20110110
  3. CIALIS [Suspect]
     Indication: ERECTILE DYSFUNCTION
     Dosage: 2 TABLETS OF 20 MG
     Route: 048
  4. VIAGRA [Suspect]
     Dosage: 50 MG, 1X/DAY
     Route: 048
     Dates: start: 20030101
  5. VIAGRA [Suspect]
     Dosage: 100 MG, 1X/DAY
     Route: 048
  6. SELOZOK [Concomitant]
     Indication: HYPERTENSION
     Dosage: 12.5 MG, 2X/DAY
     Dates: start: 19980101
  7. VIAGRA [Suspect]
     Dosage: 2 TABLETS OF 50MG AT ONCE
     Route: 048
  8. VIAGRA [Suspect]
     Dosage: 120 MG, BEFORE SEXUAL INTERCOUSE
     Route: 048
  9. SOMALGIN [Concomitant]
     Indication: THROMBOSIS PROPHYLAXIS
     Dosage: 100 MG, 1X/DAY
  10. LOSARTAN [Concomitant]
     Indication: HYPERTENSION
     Dosage: UNK
     Dates: start: 19980101

REACTIONS (7)
  - DRUG INEFFECTIVE [None]
  - NEPHROLITHIASIS [None]
  - DEPRESSION [None]
  - FEELING OF DESPAIR [None]
  - IRRITABILITY [None]
  - INTENTIONAL DRUG MISUSE [None]
  - FRUSTRATION [None]
